FAERS Safety Report 4690766-8 (Version None)
Quarter: 2005Q2

REPORT INFORMATION
  Report Type: 
  Country: None (occurrence: None)
  Receive Date: 20050615
  Receipt Date: 20050407
  Transmission Date: 20051028
  Serious: Yes (Other)
  Sender: FDA-Public Use
  Company Number: US-MERCK-0504USA00896

PATIENT
  Age: 60 Year
  Sex: Female
  Weight: 77 kg

DRUGS (3)
  1. VYTORIN [Suspect]
     Indication: HYPERCHOLESTEROLAEMIA
     Route: 048
     Dates: start: 20050223, end: 20050405
  2. LEVOTHYROXINE SODIUM [Concomitant]
     Indication: HYPOTHYROIDISM
     Route: 048
  3. ATENOLOL [Concomitant]
     Route: 048

REACTIONS (6)
  - ANXIETY [None]
  - CRYING [None]
  - DYSPNOEA [None]
  - NASAL CONGESTION [None]
  - OCULAR HYPERAEMIA [None]
  - SNORING [None]
